FAERS Safety Report 8976191 (Version 1)
Quarter: 2012Q4

REPORT INFORMATION
  Report Type: 
  Country: CH (occurrence: CH)
  Receive Date: 20121220
  Receipt Date: 20121220
  Transmission Date: 20130627
  Serious: Yes (Other)
  Sender: FDA-Public Use
  Company Number: CH-PFIZER INC-2012314279

PATIENT
  Age: 43 Year
  Sex: Female

DRUGS (9)
  1. SALAZOPYRIN [Suspect]
     Indication: POLYARTHRITIS
     Dosage: 500 mg, 1x/day (0-0-1)
     Dates: start: 20120404
  2. SALAZOPYRIN [Interacting]
     Dosage: 1 g daily
  3. SALAZOPYRIN [Interacting]
     Dosage: 1.5 g daily
  4. SALAZOPYRIN [Interacting]
     Dosage: 1 g, 2x/day
     Dates: start: 201205
  5. ELTROXIN [Interacting]
     Indication: HASHIMOTO^S THYROIDITIS
     Dosage: 0.15 mg, 1x/day (1-0-0)
     Route: 048
     Dates: end: 20121003
  6. CALCIMAGON-D3 [Suspect]
     Dosage: 1 DF, 1x/day
     Route: 048
     Dates: start: 20120418, end: 20120726
  7. PREDNISON [Concomitant]
     Dosage: 10 mg, 1x/day
     Route: 048
     Dates: start: 20120411
  8. PREDNISON [Concomitant]
     Dosage: 20 mg, UNK
  9. PREDNISON [Concomitant]
     Dosage: UNK
     Dates: end: 20120726

REACTIONS (3)
  - Drug interaction [Recovered/Resolved]
  - Therapeutic response decreased [Recovered/Resolved]
  - Hypothyroidism [Recovered/Resolved]
